FAERS Safety Report 4722080-6 (Version None)
Quarter: 2005Q3

REPORT INFORMATION
  Report Type: 
  Country: None (occurrence: None)
  Receive Date: 20050722
  Receipt Date: 20050711
  Transmission Date: 20060218
  Serious: Yes (Other)
  Sender: FDA-Public Use
  Company Number: US-ROCHE-410629

PATIENT
  Age: 14 Year
  Sex: Female
  Weight: 61.7 kg

DRUGS (2)
  1. ACCUTANE [Suspect]
     Indication: ACNE
     Route: 048
     Dates: start: 20040510, end: 20040715
  2. ISOTRETINOIN [Suspect]
     Indication: ACNE
     Route: 048
     Dates: start: 20040715, end: 20040815

REACTIONS (2)
  - DEPRESSION [None]
  - SUICIDAL IDEATION [None]
